FAERS Safety Report 9580108 (Version 1)
Quarter: 2013Q3

REPORT INFORMATION
  Report Type: Spontaneous
  Country: US (occurrence: None)
  Receive Date: 20130916
  Receipt Date: 20130916
  Transmission Date: 20140515
  Serious: Yes (Other)
  Sender: FDA-Public Use
  Company Number: JPI-P-026898

PATIENT
  Age: 33 Year
  Sex: Male

DRUGS (1)
  1. XYREM (500 MILLIGRAM/MILLILITERS, SOLUTION) (SODIUM OXYBATE) [Suspect]
     Indication: NARCOLEPSY
     Dosage: 9 GM (4.5 GM, 2 IN 1 D), ORAL
     Route: 048
     Dates: start: 20111019

REACTIONS (6)
  - Drug abuse [None]
  - Schizoaffective disorder [None]
  - Abnormal dreams [None]
  - Hallucination, auditory [None]
  - Tearfulness [None]
  - Condition aggravated [None]
